FAERS Safety Report 20262973 (Version 1)
Quarter: 2021Q4

REPORT INFORMATION
  Report Type: Spontaneous
  Country: US (occurrence: US)
  Receive Date: 20211231
  Receipt Date: 20211231
  Transmission Date: 20220304
  Serious: No
  Sender: FDA-Public Use
  Company Number: US-AMGEN-USASP2021205971

PATIENT
  Age: 58 Year
  Sex: Female

DRUGS (2)
  1. NEUPOGEN [Suspect]
     Active Substance: FILGRASTIM
     Indication: Neutropenia
     Dosage: 480 MICROGRAM, Q2WK
     Route: 065
  2. POLYSORBATE 80 [Concomitant]
     Active Substance: POLYSORBATE 80
     Indication: Product used for unknown indication
     Dosage: UNK
     Route: 065

REACTIONS (4)
  - Musculoskeletal discomfort [Recovered/Resolved]
  - Injection site pain [Not Recovered/Not Resolved]
  - Myalgia [Recovered/Resolved]
  - Swelling [Not Recovered/Not Resolved]

NARRATIVE: CASE EVENT DATE: 20211224
